FAERS Safety Report 6302383-4 (Version None)
Quarter: 2009Q3

REPORT INFORMATION
  Report Type: 
  Country: None (occurrence: None)
  Receive Date: 20090810
  Receipt Date: 20090806
  Transmission Date: 20100115
  Serious: Yes (Death, Hospitalization)
  Sender: FDA-Public Use
  Company Number: PHHY2009BR19196

PATIENT
  Sex: Male

DRUGS (9)
  1. DIOVAN [Suspect]
     Indication: HYPERTENSION
     Dosage: 1 TABLET/DAY
     Route: 048
  2. ATENOLOL [Concomitant]
     Indication: CARDIAC DISORDER
     Dosage: 50 MG, QD
     Route: 048
     Dates: end: 20090501
  3. SUSTRATE [Concomitant]
     Indication: CARDIAC DISORDER
     Dosage: 1 TABLET/DAY
     Route: 048
     Dates: start: 20090301, end: 20090501
  4. ZANIDIP [Concomitant]
     Indication: CARDIAC DISORDER
     Dosage: 1 TABLET DAILY
     Route: 048
     Dates: end: 20090501
  5. ATORVASTATIN [Concomitant]
     Indication: CARDIAC DISORDER
     Dosage: HALF TABLET DAILY
     Route: 048
     Dates: end: 20090501
  6. ENALAPRIL MALEATE [Concomitant]
     Indication: CARDIAC DISORDER
     Dosage: 20 MG, BID
     Route: 048
     Dates: end: 20090501
  7. NPH INSULIN [Concomitant]
     Indication: DIABETES MELLITUS
     Dosage: 40 IU IN MORNING AND 18 IU AT NIGHT
     Route: 058
     Dates: end: 20090501
  8. INSULIN [Concomitant]
     Indication: DIABETES MELLITUS
     Dosage: UNK
     Route: 058
     Dates: end: 20090501
  9. DIAXQUO [Concomitant]
     Indication: CARDIAC DISORDER
     Dosage: 1 TABLET/DAY
     Route: 048
     Dates: end: 20090501

REACTIONS (5)
  - CEREBROVASCULAR ACCIDENT [None]
  - COMA [None]
  - INFARCTION [None]
  - ISCHAEMIC STROKE [None]
  - VENOUS OCCLUSION [None]
